FAERS Safety Report 17760546 (Version 2)
Quarter: 2020Q2

REPORT INFORMATION
  Report Type: Report from Study
  Country: US (occurrence: US)
  Receive Date: 20200508
  Receipt Date: 20200609
  Transmission Date: 20200714
  Serious: No
  Sender: FDA-Public Use
  Company Number: NVSC2020US125231

PATIENT
  Sex: Male

DRUGS (1)
  1. ENTRESTO [Suspect]
     Active Substance: SACUBITRIL\VALSARTAN
     Indication: CARDIAC FAILURE CHRONIC
     Dosage: 24 MG, BID
     Route: 065
     Dates: start: 201912

REACTIONS (8)
  - Glucose tolerance impaired [Unknown]
  - Product dose omission [Unknown]
  - Memory impairment [Unknown]
  - Somnolence [Unknown]
  - Fatigue [Unknown]
  - Weight decreased [Unknown]
  - Sleep apnoea syndrome [Unknown]
  - Asthenia [Not Recovered/Not Resolved]
